FAERS Safety Report 8243973-1 (Version None)
Quarter: 2012Q1

REPORT INFORMATION
  Report Type: 
  Country: None (occurrence: None)
  Receive Date: 20120329
  Receipt Date: 20111101
  Transmission Date: 20120608
  Serious: No
  Sender: FDA-Public Use
  Company Number: US-MYLANLABS-2011S1022772

PATIENT
  Sex: Female

DRUGS (8)
  1. ASEP [Concomitant]
  2. EYE DROPS [Concomitant]
  3. AMLODIPINE [Concomitant]
  4. ALPHAGAN [Concomitant]
  5. ESTRADIOL [Suspect]
     Indication: HORMONE REPLACEMENT THERAPY
     Dosage: CHANGED QW
     Route: 062
  6. LATANOPROST [Concomitant]
  7. LIPITOR [Concomitant]
  8. PANTOPRAZOLE [Concomitant]

REACTIONS (1)
  - APPLICATION SITE IRRITATION [None]
